FAERS Safety Report 11224958 (Version 1)
Quarter: 2015Q2

REPORT INFORMATION
  Report Type: Report from Study
  Country: AR (occurrence: AR)
  Receive Date: 20150629
  Receipt Date: 20150629
  Transmission Date: 20150821
  Serious: Yes (Death, Disabling, Other)
  Sender: FDA-Public Use
  Company Number: AR-ABBVIE-15P-007-1417124-00

PATIENT
  Sex: Female

DRUGS (1)
  1. ZEMPLAR [Suspect]
     Active Substance: PARICALCITOL
     Indication: HYPERPARATHYROIDISM SECONDARY
     Route: 042
     Dates: start: 20140301

REACTIONS (4)
  - Leg amputation [Unknown]
  - Localised infection [Fatal]
  - Myocardial infarction [Fatal]
  - General physical health deterioration [Fatal]
